FAERS Safety Report 9950507 (Version 1)
Quarter: 2014Q1

REPORT INFORMATION
  Report Type: Report from Study
  Country: US (occurrence: US)
  Receive Date: 20140304
  Receipt Date: 20140304
  Transmission Date: 20141002
  Serious: Yes (Other)
  Sender: FDA-Public Use
  Company Number: US-ABBVIE-13P-163-1071174-00

PATIENT
  Age: 49 Year
  Sex: Male
  Weight: 116.22 kg

DRUGS (1)
  1. HUMIRA [Suspect]
     Indication: PSORIASIS
     Route: 058
     Dates: start: 20121019, end: 20130322

REACTIONS (4)
  - Cellulitis [Unknown]
  - Cyst [Unknown]
  - Cyst [Unknown]
  - Psoriasis [Unknown]
